FAERS Safety Report 10611361 (Version 5)
Quarter: 2015Q1

REPORT INFORMATION
  Report Type: Report from Study
  Country: CH (occurrence: CH)
  Receive Date: 20141126
  Receipt Date: 20150211
  Transmission Date: 20150720
  Serious: Yes (Other)
  Sender: FDA-Public Use
  Company Number: CH-GLAXOSMITHKLINE-CH2014GSK026349

PATIENT
  Age: 56 Year
  Sex: Female
  Weight: 61 kg

DRUGS (9)
  1. DABRAFENIB [Suspect]
     Active Substance: DABRAFENIB
     Dosage: 100 MG, BID
     Dates: start: 20140717, end: 20140724
  2. TRAMETINIB [Suspect]
     Active Substance: TRAMETINIB
     Dosage: 1.5 MG, QD
     Dates: start: 20140805
  3. DABRAFENIB [Suspect]
     Active Substance: DABRAFENIB
     Dosage: 75 MG, BID
     Dates: start: 20140805, end: 20141109
  4. CLARITHROMYCIN. [Concomitant]
     Active Substance: CLARITHROMYCIN
     Indication: NASOPHARYNGITIS
  5. TRAMADOLOR [Concomitant]
     Active Substance: TRAMADOL
  6. NOVALGIN [Concomitant]
     Active Substance: METAMIZOLE SODIUM
  7. CAPSAICIN. [Concomitant]
     Active Substance: CAPSAICIN
     Indication: PAIN
  8. DABRAFENIB [Suspect]
     Active Substance: DABRAFENIB
     Indication: METASTATIC MALIGNANT MELANOMA
     Dosage: 150 MG, BID
     Dates: start: 20140703, end: 20140709
  9. TRAMETINIB [Suspect]
     Active Substance: TRAMETINIB
     Indication: METASTATIC MALIGNANT MELANOMA
     Dosage: 2 MG, QD
     Dates: start: 20140703, end: 20140724

REACTIONS (1)
  - Polyneuropathy [Recovering/Resolving]

NARRATIVE: CASE EVENT DATE: 20141021
